FAERS Safety Report 5321567-5 (Version None)
Quarter: 2007Q1

REPORT INFORMATION
  Report Type: 
  Country: None (occurrence: None)
  Receive Date: 20070215
  Receipt Date: 20061031
  Transmission Date: 20070707
  Serious: No
  Sender: FDA-Public Use
  Company Number: 200616283BWH

PATIENT
  Age: 75 Year
  Sex: Male

DRUGS (7)
  1. NEXAVAR [Suspect]
     Indication: METASTASES TO LUNG
     Dosage: 800 MG, TOTAL DAILY; ORAL
     Route: 048
     Dates: start: 20060201
  2. NEXAVAR [Suspect]
     Indication: METASTATIC RENAL CELL CARCINOMA
     Dosage: 800 MG, TOTAL DAILY; ORAL
     Route: 048
     Dates: start: 20060201
  3. FLUOROURACIL [Concomitant]
  4. NIFEDIPINE [Concomitant]
  5. TYLENOL PM (DIPHENHYDRAMINE, PARACETAMOL) [Concomitant]
  6. IMODIUM [Concomitant]
  7. MUCOSITIS COCKTAIL [Concomitant]

REACTIONS (3)
  - CACHEXIA [None]
  - HUNGER [None]
  - WEIGHT DECREASED [None]
